FAERS Safety Report 16582470 (Version 4)
Quarter: 2023Q1

REPORT INFORMATION
  Report Type: Report from Study
  Country: US (occurrence: None)
  Receive Date: 20190717
  Receipt Date: 20230324
  Transmission Date: 20230418
  Serious: Yes (Hospitalization)
  Sender: FDA-Public Use
  Company Number: US-ROCHE-2352994

PATIENT
  Age: 55 Year
  Sex: Female

DRUGS (30)
  1. ATEZOLIZUMAB [Suspect]
     Active Substance: ATEZOLIZUMAB
     Indication: Oesophageal adenocarcinoma
     Dosage: DATE OF LAST DOSE OF ATEZOLIZUMAB PRIOR TO SERIOUS ADVERSE EVENT: 01/JUL/2019
     Route: 042
     Dates: start: 20190415, end: 20190701
  2. ATEZOLIZUMAB [Suspect]
     Active Substance: ATEZOLIZUMAB
     Route: 042
     Dates: start: 20190429
  3. ATEZOLIZUMAB [Suspect]
     Active Substance: ATEZOLIZUMAB
     Route: 042
     Dates: start: 20190520
  4. ATEZOLIZUMAB [Suspect]
     Active Substance: ATEZOLIZUMAB
     Route: 042
     Dates: start: 20190617
  5. ATEZOLIZUMAB [Suspect]
     Active Substance: ATEZOLIZUMAB
     Route: 042
     Dates: start: 20190701
  6. LEUCOVORIN [Suspect]
     Active Substance: LEUCOVORIN
     Indication: Oesophageal adenocarcinoma
     Dosage: DATE OF LAST DOSE OF FOLINIC ACID PRIOR TO SERIOUS ADVERSE EVENT: 01/JUL/2019
     Route: 042
     Dates: start: 20190415, end: 20190701
  7. LEUCOVORIN [Suspect]
     Active Substance: LEUCOVORIN
     Route: 042
     Dates: start: 20190429
  8. LEUCOVORIN [Suspect]
     Active Substance: LEUCOVORIN
     Route: 042
     Dates: start: 20190520
  9. LEUCOVORIN [Suspect]
     Active Substance: LEUCOVORIN
     Route: 042
     Dates: start: 20190617
  10. LEUCOVORIN [Suspect]
     Active Substance: LEUCOVORIN
     Route: 042
     Dates: start: 20190701
  11. FLUOROURACIL [Suspect]
     Active Substance: FLUOROURACIL
     Indication: Oesophageal adenocarcinoma
     Dosage: DATE OF LAST DOSE OF FLUOROURACIL PRIOR TO SERIOUS ADVERSE EVENT: 01/JUL/2019
     Route: 042
     Dates: start: 20190415, end: 20190701
  12. FLUOROURACIL [Suspect]
     Active Substance: FLUOROURACIL
     Dosage: COMPLETED 12 WEEKLY DOSES
     Route: 042
     Dates: start: 20070327
  13. FLUOROURACIL [Suspect]
     Active Substance: FLUOROURACIL
     Route: 042
     Dates: start: 20190429
  14. FLUOROURACIL [Suspect]
     Active Substance: FLUOROURACIL
     Route: 042
     Dates: start: 20190520
  15. FLUOROURACIL [Suspect]
     Active Substance: FLUOROURACIL
     Route: 042
     Dates: start: 20190617
  16. FLUOROURACIL [Suspect]
     Active Substance: FLUOROURACIL
     Route: 042
     Dates: start: 20190701
  17. OXALIPLATIN [Suspect]
     Active Substance: OXALIPLATIN
     Indication: Oesophageal adenocarcinoma
     Dosage: DATE OF LAST DOSE OF OXALIPLATIN PRIOR TO SERIOUS ADVERSE EVENT: 01/JUL/2019
     Route: 042
     Dates: start: 20190415, end: 20190701
  18. OXALIPLATIN [Suspect]
     Active Substance: OXALIPLATIN
     Route: 042
     Dates: start: 20190429
  19. OXALIPLATIN [Suspect]
     Active Substance: OXALIPLATIN
     Route: 042
     Dates: start: 20190520
  20. OXALIPLATIN [Suspect]
     Active Substance: OXALIPLATIN
     Route: 042
     Dates: start: 20190617
  21. OXALIPLATIN [Suspect]
     Active Substance: OXALIPLATIN
     Route: 042
     Dates: start: 20190701
  22. PRILOSEC [Concomitant]
     Active Substance: OMEPRAZOLE MAGNESIUM
  23. ASPIRIN [Concomitant]
     Active Substance: ASPIRIN
  24. COREG [Concomitant]
     Active Substance: CARVEDILOL
  25. ONDANSETRON [Concomitant]
     Active Substance: ONDANSETRON
  26. COMPAZINE [Concomitant]
     Active Substance: PROCHLORPERAZINE MALEATE
  27. SYNTHROID [Concomitant]
     Active Substance: LEVOTHYROXINE SODIUM
  28. TRILIPIX [Concomitant]
     Active Substance: FENOFIBRIC ACID
  29. REMERON [Concomitant]
     Active Substance: MIRTAZAPINE
  30. POTASSIUM CHLORIDE [Concomitant]
     Active Substance: POTASSIUM CHLORIDE

REACTIONS (1)
  - Hypertensive crisis [Recovered/Resolved]

NARRATIVE: CASE EVENT DATE: 20190709
